FAERS Safety Report 16225468 (Version 4)
Quarter: 2020Q3

REPORT INFORMATION
  Report Type: Spontaneous
  Country: US (occurrence: US)
  Receive Date: 20190422
  Receipt Date: 20200827
  Transmission Date: 20201102
  Serious: Yes (Other)
  Sender: FDA-Public Use
  Company Number: US-GILEAD-2019-0402882

PATIENT
  Age: 29 Year
  Sex: Male
  Weight: 76 kg

DRUGS (39)
  1. ACYCLOVIR [ACICLOVIR] [Concomitant]
     Active Substance: ACYCLOVIR
  2. SELENIUM SULFIDE. [Concomitant]
     Active Substance: SELENIUM SULFIDE
  3. FAMOTIDINE. [Concomitant]
     Active Substance: FAMOTIDINE
  4. ISENTRESS [Concomitant]
     Active Substance: RALTEGRAVIR POTASSIUM
  5. ALINIA [Concomitant]
     Active Substance: NITAZOXANIDE
  6. TIVICAY [Concomitant]
     Active Substance: DOLUTEGRAVIR SODIUM
  7. PENICILLIN NOS [Concomitant]
     Active Substance: PENICILLIN
  8. CLINDAMYCIN. [Concomitant]
     Active Substance: CLINDAMYCIN
  9. ZIDOVUDINE. [Concomitant]
     Active Substance: ZIDOVUDINE
  10. OSCAL [Concomitant]
     Active Substance: CALCIUM CARBONATE
  11. CHLORHEXIDINE [Concomitant]
     Active Substance: CHLORHEXIDINE
  12. HYDROCODONE/ACETAMINOPHEN [Concomitant]
     Active Substance: ACETAMINOPHEN\HYDROCODONE
  13. METRONIDAZOLE. [Concomitant]
     Active Substance: METRONIDAZOLE
  14. VITAMIN D2 [Concomitant]
     Active Substance: ERGOCALCIFEROL
  15. DAPSONE. [Concomitant]
     Active Substance: DAPSONE
  16. DOXYCYCLINE. [Concomitant]
     Active Substance: DOXYCYCLINE
  17. CICLOPIROX. [Concomitant]
     Active Substance: CICLOPIROX
  18. TRIUMEQ [Concomitant]
     Active Substance: ABACAVIR SULFATE\DOLUTEGRAVIR SODIUM\LAMIVUDINE
  19. PREZCOBIX [Concomitant]
     Active Substance: COBICISTAT\DARUNAVIR ETHANOLATE
  20. IBUPROFEN. [Concomitant]
     Active Substance: IBUPROFEN
  21. ATRIPLA [Suspect]
     Active Substance: EFAVIRENZ\EMTRICITABINE\TENOFOVIR DISOPROXIL FUMARATE
     Indication: HIV INFECTION
     Dosage: UNK
     Route: 048
     Dates: start: 20110325, end: 201303
  22. TRUVADA [Suspect]
     Active Substance: EMTRICITABINE\TENOFOVIR DISOPROXIL FUMARATE
     Indication: HIV INFECTION
     Dosage: UNK
     Route: 048
     Dates: start: 20130308, end: 201604
  23. CIPROFLOXACIN. [Concomitant]
     Active Substance: CIPROFLOXACIN
  24. ATOVAQUONE. [Concomitant]
     Active Substance: ATOVAQUONE
  25. PREZISTA [Concomitant]
     Active Substance: DARUNAVIR ETHANOLATE
  26. NORVIR [Concomitant]
     Active Substance: RITONAVIR
  27. VALACYCLOVIR [Concomitant]
     Active Substance: VALACYCLOVIR HYDROCHLORIDE
  28. BACTRIM [Concomitant]
     Active Substance: SULFAMETHOXAZOLE\TRIMETHOPRIM
  29. FOLIC ACID. [Concomitant]
     Active Substance: FOLIC ACID
  30. AZITHROMYCIN ANHYDROUS. [Concomitant]
     Active Substance: AZITHROMYCIN ANHYDROUS
  31. SULFAMETHOXAZOLE AND TRIMETHOPRIM [Concomitant]
     Active Substance: SULFAMETHOXAZOLE\TRIMETHOPRIM
  32. KLOR?CON [Concomitant]
     Active Substance: POTASSIUM CHLORIDE
  33. HEPARIN [Concomitant]
     Active Substance: HEPARIN SODIUM
  34. BIKTARVY [Concomitant]
     Active Substance: BICTEGRAVIR SODIUM\EMTRICITABINE\TENOFOVIR ALAFENAMIDE FUMARATE
  35. AMOXICILLIN. [Concomitant]
     Active Substance: AMOXICILLIN
  36. RANITIDINE. [Concomitant]
     Active Substance: RANITIDINE
  37. OXYCODONE AND ACETAMINOPHEN [Concomitant]
     Active Substance: ACETAMINOPHEN\OXYCODONE HYDROCHLORIDE
  38. BACLOFEN. [Concomitant]
     Active Substance: BACLOFEN
  39. VITAMIN D3 [Concomitant]
     Active Substance: CHOLECALCIFEROL

REACTIONS (13)
  - Anxiety [Unknown]
  - Renal failure [Not Recovered/Not Resolved]
  - Tooth loss [Not Recovered/Not Resolved]
  - Bone density decreased [Unknown]
  - Anhedonia [Unknown]
  - Pain [Unknown]
  - Bone loss [Not Recovered/Not Resolved]
  - Chronic kidney disease [Not Recovered/Not Resolved]
  - Economic problem [Unknown]
  - Emotional distress [Unknown]
  - Asthenia [Unknown]
  - End stage renal disease [Unknown]
  - Fanconi syndrome acquired [Not Recovered/Not Resolved]

NARRATIVE: CASE EVENT DATE: 20150106
